FAERS Safety Report 5048543-4 (Version None)
Quarter: 2006Q2

REPORT INFORMATION
  Report Type: 
  Country: None (occurrence: None)
  Receive Date: 20060601
  Receipt Date: 20060309
  Transmission Date: 20061013
  Serious: No
  Sender: FDA-Public Use
  Company Number: US200603002330

PATIENT
  Age: 70 Year
  Sex: Female

DRUGS (3)
  1. CYMBALTA [Suspect]
     Indication: NEUROPATHY PERIPHERAL
     Dosage: 60 MG, DAILY (1/D), ORAL
     Route: 048
     Dates: start: 20050301
  2. LISINOPRIL [Concomitant]
  3. OS-CAL (CALCIUM, ERGOCALCIFEROL) [Concomitant]

REACTIONS (2)
  - HEART RATE INCREASED [None]
  - HYPERVENTILATION [None]
